FAERS Safety Report 5302960-3 (Version None)
Quarter: 2007Q2

REPORT INFORMATION
  Report Type: 
  Country: None (occurrence: None)
  Receive Date: 20070413
  Receipt Date: 20070405
  Transmission Date: 20071010
  Serious: Yes (Hospitalization)
  Sender: FDA-Public Use
  Company Number: 232733K07USA

PATIENT
  Age: 42 Year
  Sex: Male

DRUGS (1)
  1. REBIF [Suspect]
     Indication: MULTIPLE SCLEROSIS
     Dosage: NOT REPORTED, NOT REPORTED, SUBCUTANEOUS
     Route: 058
     Dates: start: 20061211, end: 20070401

REACTIONS (1)
  - HOSPITALISATION [None]
